FAERS Safety Report 9331110 (Version 1)
Quarter: 2013Q2

REPORT INFORMATION
  Report Type: Spontaneous
  Country: US (occurrence: US)
  Receive Date: 20130605
  Receipt Date: 20130605
  Transmission Date: 20140414
  Serious: Yes (Hospitalization)
  Sender: FDA-Public Use
  Company Number: US-SANOFI-AVENTIS-2013SA055795

PATIENT
  Sex: Male

DRUGS (2)
  1. GLYBURIDE [Suspect]
     Route: 065
  2. JANUMET [Concomitant]

REACTIONS (2)
  - Pancreatitis acute [Unknown]
  - Blood glucose increased [Unknown]
